FAERS Safety Report 8417997 (Version 2)
Quarter: 2012Q4

REPORT INFORMATION
  Report Type: 
  Country: CA (occurrence: CA)
  Receive Date: 20120221
  Receipt Date: 20121019
  Transmission Date: 20130627
  Serious: Yes (Other)
  Sender: FDA-Public Use
  Company Number: CA-JNJFOC-20120200773

PATIENT
  Age: 79 None
  Sex: Female
  Weight: 81.5 kg

DRUGS (6)
  1. REMICADE [Suspect]
     Indication: COLITIS ULCERATIVE
     Route: 042
  2. DOMPERIDONE [Concomitant]
     Indication: COLITIS ULCERATIVE
     Route: 048
  3. HYDROCHLOROTHIAZIDE [Concomitant]
     Indication: HYPERTENSION
     Route: 048
  4. RAMIPRIL [Concomitant]
     Indication: HYPERTENSION
     Route: 048
  5. LIQUID POTASSIUM [Concomitant]
     Indication: HYPOKALAEMIA
     Route: 048
  6. METHOTREXATE [Concomitant]
     Indication: COLITIS ULCERATIVE
     Dosage: three pills weekly
     Route: 065

REACTIONS (3)
  - Rib fracture [Recovered/Resolved]
  - Infection [Recovered/Resolved]
  - Fall [Recovered/Resolved]
